FAERS Safety Report 8808686 (Version 1)
Quarter: 2012Q4

REPORT INFORMATION
  Report Type: Spontaneous
  Country: US (occurrence: None)
  Receive Date: 20120921
  Receipt Date: 20120921
  Transmission Date: 20130627
  Serious: Yes (Life-Threatening, Hospitalization, Other)
  Sender: FDA-Public Use
  Company Number: None

PATIENT
  Age: 76 Year
  Sex: Female
  Weight: 125.65 kg

DRUGS (1)
  1. DAPSONE [Suspect]
     Route: 048
     Dates: start: 201202, end: 20120416

REACTIONS (10)
  - Dyspnoea [None]
  - Neuropathy peripheral [None]
  - Chills [None]
  - Fatigue [None]
  - Pain [None]
  - Dysphagia [None]
  - Cognitive disorder [None]
  - Arthralgia [None]
  - Alopecia [None]
  - White blood cell count decreased [None]
